FAERS Safety Report 9225337 (Version 2)
Quarter: 2013Q2

REPORT INFORMATION
  Report Type: Report from Study
  Country: DE (occurrence: DE)
  Receive Date: 20130411
  Receipt Date: 20130521
  Transmission Date: 20140414
  Serious: Yes (Other)
  Sender: FDA-Public Use
  Company Number: DE-ROCHE-1209993

PATIENT
  Age: 70 Year
  Sex: Female

DRUGS (2)
  1. ALTEPLASE [Suspect]
     Indication: RETINAL ARTERY OCCLUSION
     Route: 013
  2. HEPARIN [Suspect]
     Indication: PRODUCT USED FOR UNKNOWN INDICATION
     Route: 065

REACTIONS (1)
  - Visual acuity reduced [Unknown]
